FAERS Safety Report 9882290 (Version 3)
Quarter: 2014Q2

REPORT INFORMATION
  Report Type: Spontaneous
  Country: US (occurrence: US)
  Receive Date: 20140207
  Receipt Date: 20140403
  Transmission Date: 20141212
  Serious: Yes (Life-Threatening, Other)
  Sender: FDA-Public Use
  Company Number: US-JNJFOC-20140119437

PATIENT
  Sex: Female

DRUGS (1)
  1. DOXORUBICIN HYDROCHLORIDE [Suspect]
     Indication: BREAST CANCER
     Dosage: FOR 4 CYCLES ON DAYS 1-3
     Route: 042

REACTIONS (30)
  - Fatigue [Unknown]
  - Granulocytopenia [Unknown]
  - Neutropenia [Unknown]
  - Lymphopenia [Unknown]
  - Thrombocytopenia [Unknown]
  - Anaemia [Unknown]
  - Stomatitis [Unknown]
  - Oesophagitis [Unknown]
  - Nausea [Unknown]
  - Vomiting [Unknown]
  - Infection [Unknown]
  - Dyspnoea [Unknown]
  - Mood altered [Unknown]
  - Cardiac disorder [Unknown]
  - White blood cell count decreased [Unknown]
  - Platelet count decreased [Unknown]
  - Haemoglobin decreased [Unknown]
  - Granulocytes abnormal [Unknown]
  - Lymphocyte count decreased [Unknown]
  - Diarrhoea [Unknown]
  - Decreased appetite [Unknown]
  - Pain [Unknown]
  - Skin disorder [Unknown]
  - Breast cancer [Unknown]
  - Dysphagia [Unknown]
  - Toxicity to various agents [Unknown]
  - Haematuria [Unknown]
  - Arrhythmia [Unknown]
  - Pyrexia [Unknown]
  - Abdominal discomfort [Unknown]
